FAERS Safety Report 20001866 (Version 1)
Quarter: 2021Q4

REPORT INFORMATION
  Report Type: Spontaneous
  Country: US (occurrence: US)
  Receive Date: 20211027
  Receipt Date: 20211027
  Transmission Date: 20220303
  Serious: No
  Sender: FDA-Public Use
  Company Number: US-PFIZER INC-2021399838

PATIENT
  Age: 72 Year
  Sex: Male

DRUGS (1)
  1. PRISTIQ EXTENDED-RELEASE [Suspect]
     Active Substance: DESVENLAFAXINE SUCCINATE
     Indication: Major depression
     Dosage: 50 MG, 1X/DAY
     Route: 048

REACTIONS (3)
  - Prehypertension [Unknown]
  - Blood pressure increased [Unknown]
  - Illness [Unknown]

NARRATIVE: CASE EVENT DATE: 20210408
